FAERS Safety Report 6901736-0 (Version None)
Quarter: 2010Q3

REPORT INFORMATION
  Report Type: 
  Country: None (occurrence: None)
  Receive Date: 20100803
  Receipt Date: 20080315
  Transmission Date: 20110219
  Serious: Yes (Other)
  Sender: FDA-Public Use
  Company Number: US-PFIZER INC-2008007297

PATIENT
  Sex: Female
  Weight: 77.1 kg

DRUGS (14)
  1. LYRICA [Suspect]
     Indication: NEUROPATHY PERIPHERAL
     Route: 048
     Dates: start: 20071227, end: 20080119
  2. VITAMIN B [Concomitant]
  3. ASCORBIC ACID [Concomitant]
  4. VITAMIN E [Concomitant]
  5. VITAMIN B-12 [Concomitant]
  6. ALLERGENS [Concomitant]
  7. SYNTHROID [Concomitant]
  8. ZETIA [Concomitant]
  9. LUTEIN [Concomitant]
  10. DARVOCET [Concomitant]
  11. VISTARIL [Concomitant]
  12. CALCIUM [Concomitant]
  13. NEXIUM [Concomitant]
  14. AMBIEN [Concomitant]

REACTIONS (1)
  - BLISTER [None]
